FAERS Safety Report 14709885 (Version 1)
Quarter: 2018Q2

REPORT INFORMATION
  Report Type: Spontaneous
  Country: US (occurrence: US)
  Receive Date: 20180403
  Receipt Date: 20180403
  Transmission Date: 20180711
  Serious: No
  Sender: FDA-Public Use
  Company Number: US-NEOS THERAPEUTICS, LP-2018NEO00005

PATIENT
  Age: 23 Year
  Sex: Female
  Weight: 86.17 kg

DRUGS (3)
  1. COTEMPLA XR-ODT [Suspect]
     Active Substance: METHYLPHENIDATE
     Indication: ATTENTION DEFICIT/HYPERACTIVITY DISORDER
     Dosage: 34.6 MG, 1X/DAY
     Route: 048
     Dates: start: 20180109, end: 20180111
  2. UNSPECIFIED STOMACH ULCER MEDICATION [Concomitant]
     Dosage: UNK, 1X/DAY
  3. COTEMPLA XR-ODT [Suspect]
     Active Substance: METHYLPHENIDATE
     Dosage: 17.3 MG, 1X/DAY
     Route: 048
     Dates: start: 20180112, end: 201801

REACTIONS (6)
  - Abdominal pain upper [Recovered/Resolved]
  - Drug hypersensitivity [Recovered/Resolved]
  - Abdominal discomfort [Recovered/Resolved]
  - Dizziness [Recovered/Resolved]
  - Insomnia [Recovered/Resolved]
  - Off label use [Recovered/Resolved]

NARRATIVE: CASE EVENT DATE: 201801
